FAERS Safety Report 11165443 (Version 1)
Quarter: 2015Q2

REPORT INFORMATION
  Report Type: Spontaneous
  Country: US (occurrence: US)
  Receive Date: 20150604
  Receipt Date: 20150604
  Transmission Date: 20150821
  Serious: No
  Sender: FDA-Public Use
  Company Number: US-GLAXOSMITHKLINE-US2015074930

PATIENT
  Sex: Male

DRUGS (1)
  1. NICORETTE FRESH MINT [Suspect]
     Active Substance: NICOTINE
     Indication: TOBACCO ABUSE
     Dosage: 2 MG, UNK
     Dates: start: 20150504, end: 20150511

REACTIONS (2)
  - Dysgeusia [Recovered/Resolved]
  - Dry mouth [Recovered/Resolved]
